FAERS Safety Report 9829859 (Version 1)
Quarter: 2014Q1

REPORT INFORMATION
  Report Type: Spontaneous
  Country: US (occurrence: US)
  Receive Date: 20140120
  Receipt Date: 20140120
  Transmission Date: 20141002
  Serious: No
  Sender: FDA-Public Use
  Company Number: US-009507513-1401USA007852

PATIENT
  Sex: Female

DRUGS (2)
  1. LOTRIMIN AF SPRAY POWDER [Suspect]
     Indication: PRURITUS
     Dosage: UNK, UNKNOWN
     Route: 061
     Dates: start: 2013
  2. LOTRIMIN AF SPRAY POWDER [Suspect]
     Indication: BURNING SENSATION

REACTIONS (1)
  - Drug ineffective [Unknown]
